FAERS Safety Report 18831479 (Version 1)
Quarter: 2021Q1

REPORT INFORMATION
  Report Type: Spontaneous
  Country: US (occurrence: US)
  Receive Date: 20210203
  Receipt Date: 20210203
  Transmission Date: 20210419
  Serious: No
  Sender: FDA-Public Use
  Company Number: US-ALLERGAN-2038050US

PATIENT
  Sex: Female

DRUGS (5)
  1. VITAMIN D                          /00107901/ [Concomitant]
     Active Substance: ERGOCALCIFEROL
  2. BOTOX [Suspect]
     Active Substance: ONABOTULINUMTOXINA
     Indication: HYPERTONIC BLADDER
     Dosage: 100 UNITS
  3. BOTOX [Suspect]
     Active Substance: ONABOTULINUMTOXINA
     Dosage: 50 UNITS, SINGLE
  4. CALCIUM [Concomitant]
     Active Substance: CALCIUM
  5. CARVEDILOL. [Concomitant]
     Active Substance: CARVEDILOL
     Indication: CARDIAC DISORDER

REACTIONS (4)
  - Cystitis [Not Recovered/Not Resolved]
  - Adverse drug reaction [Unknown]
  - Bacterial infection [Not Recovered/Not Resolved]
  - Kidney infection [Not Recovered/Not Resolved]
